FAERS Safety Report 7046557-6 (Version None)
Quarter: 2010Q4

REPORT INFORMATION
  Report Type: 
  Country: None (occurrence: None)
  Receive Date: 20101015
  Receipt Date: 20101001
  Transmission Date: 20110411
  Serious: Yes (Hospitalization, Disabling)
  Sender: FDA-Public Use
  Company Number: CH-BIOGENIDEC-2010BI027328

PATIENT
  Age: 15 Year
  Sex: Female

DRUGS (2)
  1. AVONEX [Suspect]
     Indication: MULTIPLE SCLEROSIS
     Dates: start: 20100507, end: 20091101
  2. AVONEX [Suspect]
     Dates: start: 20091101, end: 20100801

REACTIONS (6)
  - DIARRHOEA [None]
  - FEELING HOT [None]
  - INFLUENZA LIKE ILLNESS [None]
  - MULTIPLE SCLEROSIS RELAPSE [None]
  - RECTAL TENESMUS [None]
  - SENSORY DISTURBANCE [None]
